FAERS Safety Report 9696882 (Version 1)
Quarter: 2013Q4

REPORT INFORMATION
  Report Type: Spontaneous
  Country: US (occurrence: US)
  Receive Date: 20131119
  Receipt Date: 20131119
  Transmission Date: 20140711
  Serious: No
  Sender: FDA-Public Use
  Company Number: US-GILEAD-2007-0013979

PATIENT
  Sex: Male

DRUGS (2)
  1. LETAIRIS [Suspect]
     Indication: PULMONARY ARTERIAL HYPERTENSION
  2. EPOETIN [Concomitant]
     Indication: ANAEMIA

REACTIONS (8)
  - Oropharyngeal pain [Unknown]
  - Nasal congestion [Unknown]
  - Hot flush [Unknown]
  - Fatigue [Unknown]
  - Constipation [Unknown]
  - Palpitations [Unknown]
  - Headache [Unknown]
  - Dyspnoea [Unknown]
